FAERS Safety Report 8536670-6 (Version None)
Quarter: 2012Q3

REPORT INFORMATION
  Report Type: 
  Country: None (occurrence: None)
  Receive Date: 20120725
  Receipt Date: 20120712
  Transmission Date: 20120928
  Serious: Yes (Hospitalization)
  Sender: FDA-Public Use
  Company Number: JP-ROCHE-1040956

PATIENT
  Sex: Male

DRUGS (3)
  1. COPEGUS [Suspect]
     Indication: HEPATITIS C
     Dates: start: 20111208, end: 20120115
  2. PEGASYS [Suspect]
     Indication: HEPATITIS C
     Route: 048
     Dates: start: 20111208, end: 20120115
  3. BLINDED BI 201335 (HCV PROTEASE INHIBITOR) [Suspect]
     Indication: HEPATITIS C
     Dates: start: 20111208, end: 20120115

REACTIONS (2)
  - ASCITES [None]
  - JAUNDICE [None]
